FAERS Safety Report 8307190-9 (Version None)
Quarter: 2012Q2

REPORT INFORMATION
  Report Type: 
  Country: None (occurrence: None)
  Receive Date: 20120424
  Receipt Date: 20120418
  Transmission Date: 20120825
  Serious: Yes (Other)
  Sender: FDA-Public Use
  Company Number: US-PFIZER INC-2012096821

PATIENT
  Sex: Female
  Weight: 102 kg

DRUGS (3)
  1. TOPROL-XL [Concomitant]
     Indication: HYPERTENSION
     Dosage: UNK
  2. LIPITOR [Suspect]
     Indication: BLOOD CHOLESTEROL INCREASED
     Dosage: 10 MG, ONCE DAILY
     Route: 048
     Dates: start: 20111201
  3. LISINOPRIL [Concomitant]
     Indication: HYPERTENSION
     Dosage: UNK

REACTIONS (2)
  - NEUROPATHY PERIPHERAL [None]
  - HYPOAESTHESIA [None]
